FAERS Safety Report 10919944 (Version 8)
Quarter: 2019Q4

REPORT INFORMATION
  Report Type: Report from Study
  Country: FR (occurrence: FR)
  Receive Date: 20150317
  Receipt Date: 20191216
  Transmission Date: 20200122
  Serious: Yes (Death, Hospitalization)
  Sender: FDA-Public Use
  Company Number: FR-ROCHE-1549699

PATIENT
  Age: 37 Year
  Sex: Female
  Weight: 42 kg

DRUGS (10)
  1. METHOTREXATE. [Concomitant]
     Active Substance: METHOTREXATE
     Indication: DIFFUSE LARGE B-CELL LYMPHOMA
     Dosage: AS PER PROTOCOL. TOTAL DOSE: 15MG
     Route: 037
     Dates: start: 20130607, end: 20130726
  2. VINDESINE [Suspect]
     Active Substance: VINDESINE
     Indication: DIFFUSE LARGE B-CELL LYMPHOMA
     Dosage: AS PER PROTOCOL
     Route: 042
     Dates: start: 20130607, end: 20130726
  3. RITUXIMAB. [Concomitant]
     Active Substance: RITUXIMAB
     Route: 065
     Dates: start: 20130820, end: 20130910
  4. CYTARABIN [Concomitant]
     Active Substance: CYTARABINE
     Route: 065
     Dates: start: 20130820, end: 20130910
  5. BLEOMYCIN [Suspect]
     Active Substance: BLEOMYCIN SULFATE
     Indication: DIFFUSE LARGE B-CELL LYMPHOMA
     Dosage: AS PER PROTOCOL. TOTAL DOSE: 10MG
     Route: 042
     Dates: start: 20130607, end: 20130726
  6. OXALIPLATIN. [Concomitant]
     Active Substance: OXALIPLATIN
     Route: 065
     Dates: start: 20130820, end: 20130910
  7. PREDNISONE. [Suspect]
     Active Substance: PREDNISONE
     Indication: DIFFUSE LARGE B-CELL LYMPHOMA
     Dosage: AS PER PROTOCOL
     Route: 042
     Dates: start: 20130607, end: 20130726
  8. OBINUTUZUMAB. [Suspect]
     Active Substance: OBINUTUZUMAB
     Indication: DIFFUSE LARGE B-CELL LYMPHOMA
     Dosage: MOST RECENT DOSE PRIOR TO SAE: 26/JUL/2013.
     Route: 042
     Dates: start: 20130607
  9. DOXORUBICIN [Suspect]
     Active Substance: DOXORUBICIN
     Indication: DIFFUSE LARGE B-CELL LYMPHOMA
     Dosage: AS PER PROTOCOL
     Route: 042
     Dates: start: 20130607, end: 20130726
  10. CYCLOPHOSPHAMIDE. [Suspect]
     Active Substance: CYCLOPHOSPHAMIDE
     Indication: DIFFUSE LARGE B-CELL LYMPHOMA
     Dosage: AS PER PROTOCOL
     Route: 042
     Dates: start: 20130607, end: 20130726

REACTIONS (5)
  - Aspergillus infection [Recovered/Resolved with Sequelae]
  - Escherichia bacteraemia [Recovered/Resolved]
  - Enterocolitis [Recovered/Resolved]
  - Obliterative bronchiolitis [Fatal]
  - H3N2 influenza [Recovered/Resolved with Sequelae]

NARRATIVE: CASE EVENT DATE: 20131030
